FAERS Safety Report 12554146 (Version 1)
Quarter: 2016Q3

REPORT INFORMATION
  Report Type: Report from Study
  Country: CA (occurrence: CA)
  Receive Date: 20160713
  Receipt Date: 20160713
  Transmission Date: 20161109
  Serious: Yes (Other)
  Sender: FDA-Public Use
  Company Number: CA-JNJFOC-20160706534

PATIENT
  Age: 60 Year
  Sex: Female

DRUGS (2)
  1. CEFADROXIL. [Concomitant]
     Active Substance: CEFADROXIL
     Route: 048
  2. REMICADE [Suspect]
     Active Substance: INFLIXIMAB
     Indication: PRODUCT USED FOR UNKNOWN INDICATION
     Route: 042

REACTIONS (2)
  - Oedema peripheral [Unknown]
  - Breast neoplasm [Unknown]

NARRATIVE: CASE EVENT DATE: 20160704
